FAERS Safety Report 20709020 (Version 7)
Quarter: 2023Q1

REPORT INFORMATION
  Report Type: Report from Study
  Country: EG (occurrence: EG)
  Receive Date: 20220414
  Receipt Date: 20230106
  Transmission Date: 20230417
  Serious: Yes (Death, Hospitalization, Other)
  Sender: FDA-Public Use
  Company Number: EG-NOVARTISPH-NVSC2022EG084017

PATIENT
  Age: 43 Year
  Sex: Female

DRUGS (7)
  1. PIQRAY [Suspect]
     Active Substance: ALPELISIB
     Indication: Breast cancer metastatic
     Dosage: 2 DOSAGE FORM, QD (150MG + 150MG)
     Route: 048
     Dates: start: 20220312, end: 20220325
  2. PIQRAY [Suspect]
     Active Substance: ALPELISIB
     Dosage: UNK (2 TABLET)
     Route: 065
     Dates: start: 20220410
  3. PIQRAY [Suspect]
     Active Substance: ALPELISIB
     Dosage: 150 MG
     Route: 065
     Dates: start: 20220420
  4. PIQRAY [Suspect]
     Active Substance: ALPELISIB
     Dosage: 150 MG
     Route: 065
     Dates: start: 20220515
  5. PIQRAY [Suspect]
     Active Substance: ALPELISIB
     Dosage: 150 MG, QD (2 TABLET)
     Route: 065
     Dates: start: 20220608
  6. FEXOFENADINE [Concomitant]
     Active Substance: FEXOFENADINE HYDROCHLORIDE
     Indication: Product used for unknown indication
     Dosage: UNK, BID
     Route: 048
  7. ZYVOX [Concomitant]
     Active Substance: LINEZOLID
     Indication: Product used for unknown indication
     Dosage: UNK
     Route: 042
     Dates: end: 20220418

REACTIONS (16)
  - Death [Fatal]
  - Pyrexia [Recovered/Resolved]
  - Chills [Recovered/Resolved]
  - Sepsis [Recovered/Resolved]
  - Poisoning [Recovered/Resolved]
  - Urticaria [Recovering/Resolving]
  - Hypersensitivity [Recovering/Resolving]
  - Rash [Recovering/Resolving]
  - Swelling face [Recovered/Resolved]
  - Erythema [Recovered/Resolved]
  - Rash [Recovered/Resolved]
  - COVID-19 [Recovered/Resolved]
  - Chills [Recovered/Resolved]
  - Upper respiratory tract congestion [Recovered/Resolved]
  - Tongue discomfort [Not Recovered/Not Resolved]
  - Mouth ulceration [Recovering/Resolving]

NARRATIVE: CASE EVENT DATE: 20220323
